FAERS Safety Report 10516734 (Version 1)
Quarter: 2014Q4

REPORT INFORMATION
  Report Type: Spontaneous
  Country: DK (occurrence: DK)
  Receive Date: 20141014
  Receipt Date: 20141014
  Transmission Date: 20150528
  Serious: Yes (Hospitalization)
  Sender: FDA-Public Use
  Company Number: PHHY2014DK131227

PATIENT
  Age: 24 Year
  Sex: Female

DRUGS (1)
  1. PANCILLIN [Suspect]
     Active Substance: PENICILLIN
     Indication: SINUSITIS
     Route: 048
     Dates: start: 20140823, end: 20140824

REACTIONS (4)
  - Headache [Recovered/Resolved]
  - Pharyngeal oedema [Recovered/Resolved]
  - Angioedema [Recovered/Resolved]
  - Swelling face [Recovered/Resolved]

NARRATIVE: CASE EVENT DATE: 20140824
